FAERS Safety Report 4810280-6 (Version None)
Quarter: 2005Q4

REPORT INFORMATION
  Report Type: 
  Country: None (occurrence: None)
  Receive Date: 20051025
  Receipt Date: 20051025
  Transmission Date: 20060501
  Serious: Yes (Other)
  Sender: FDA-Public Use
  Company Number: None

PATIENT
  Age: 82 Year
  Sex: Male
  Weight: 81.9 kg

DRUGS (10)
  1. ZOCOR [Suspect]
  2. HYDROCHLOROTHIAZIDE [Concomitant]
  3. FLUOCINONIDE [Concomitant]
  4. LORATADINE [Concomitant]
  5. NIACIN [Concomitant]
  6. VALSARTAN [Concomitant]
  7. GLYBURIDE [Concomitant]
  8. SOTALOL HCL [Concomitant]
  9. COUMADIN [Concomitant]
  10. NITROGLYCERIN [Concomitant]

REACTIONS (1)
  - ASTHENIA [None]
